FAERS Safety Report 21140143 (Version 5)
Quarter: 2022Q3

REPORT INFORMATION
  Report Type: Spontaneous
  Country: CA (occurrence: CA)
  Receive Date: 20220728
  Receipt Date: 20220929
  Transmission Date: 20221027
  Serious: Yes (Other)
  Sender: FDA-Public Use
  Company Number: CA-CELLTRION INC.-2020CA020727

PATIENT

DRUGS (26)
  1. INFLECTRA [Suspect]
     Active Substance: INFLIXIMAB-DYYB
     Indication: Crohn^s disease
     Dosage: 600 MG (EVERY 5 WEEKS)
     Route: 042
     Dates: start: 20200403, end: 20200403
  2. INFLECTRA [Suspect]
     Active Substance: INFLIXIMAB-DYYB
     Dosage: 600 MG (EVERY 5 WEEKS)
     Route: 042
     Dates: start: 20200403, end: 20200403
  3. INFLECTRA [Suspect]
     Active Substance: INFLIXIMAB-DYYB
     Dosage: 600 MG (EVERY 5 WEEKS)
     Route: 042
     Dates: start: 20200508, end: 20200508
  4. INFLECTRA [Suspect]
     Active Substance: INFLIXIMAB-DYYB
     Dosage: 600 MG (EVERY 5 WEEKS)
     Route: 042
     Dates: start: 20200612
  5. INFLECTRA [Suspect]
     Active Substance: INFLIXIMAB-DYYB
     Dosage: 600 MG (EVERY 5 WEEKS)
     Route: 042
     Dates: start: 20200821
  6. INFLECTRA [Suspect]
     Active Substance: INFLIXIMAB-DYYB
     Dosage: 600 MG (EVERY 5 WEEKS)
     Route: 042
     Dates: start: 20201003
  7. INFLECTRA [Suspect]
     Active Substance: INFLIXIMAB-DYYB
     Dosage: 600 MG (EVERY 5 WEEKS)
     Route: 042
     Dates: start: 20201107
  8. INFLECTRA [Suspect]
     Active Substance: INFLIXIMAB-DYYB
     Dosage: 600 MG (EVERY 5 WEEKS)
     Route: 042
     Dates: start: 20201212
  9. INFLECTRA [Suspect]
     Active Substance: INFLIXIMAB-DYYB
     Dosage: 600 MG (EVERY 5 WEEKS)
     Route: 042
     Dates: start: 20210116
  10. INFLECTRA [Suspect]
     Active Substance: INFLIXIMAB-DYYB
     Dosage: 600 MG (EVERY 5 WEEKS)
     Route: 042
     Dates: start: 20210220
  11. INFLECTRA [Suspect]
     Active Substance: INFLIXIMAB-DYYB
     Dosage: 600 MG (EVERY 5 WEEKS)
     Route: 042
     Dates: start: 20210327
  12. INFLECTRA [Suspect]
     Active Substance: INFLIXIMAB-DYYB
     Dosage: 600 MG (EVERY 5 WEEKS)
     Route: 042
     Dates: start: 20210501
  13. INFLECTRA [Suspect]
     Active Substance: INFLIXIMAB-DYYB
     Dosage: 600 MG (EVERY 5 WEEKS)
     Route: 042
     Dates: start: 20210605
  14. INFLECTRA [Suspect]
     Active Substance: INFLIXIMAB-DYYB
     Dosage: 600 MG (EVERY 5 WEEKS)
     Route: 042
     Dates: start: 20210710
  15. INFLECTRA [Suspect]
     Active Substance: INFLIXIMAB-DYYB
     Dosage: 600 MG (EVERY 5 WEEKS)
     Route: 042
     Dates: start: 20210814
  16. INFLECTRA [Suspect]
     Active Substance: INFLIXIMAB-DYYB
     Dosage: 600 MG (EVERY 5 WEEKS)
     Route: 042
     Dates: start: 20211023
  17. INFLECTRA [Suspect]
     Active Substance: INFLIXIMAB-DYYB
     Dosage: 600 MG (EVERY 5 WEEKS)
     Route: 042
     Dates: start: 20211127
  18. INFLECTRA [Suspect]
     Active Substance: INFLIXIMAB-DYYB
     Dosage: 600 MG (EVERY 5 WEEKS)
     Route: 042
     Dates: start: 20220611
  19. INFLECTRA [Suspect]
     Active Substance: INFLIXIMAB-DYYB
     Dosage: 600 MG (EVERY 5 WEEKS)
     Route: 042
     Dates: start: 20220729
  20. INFLECTRA [Suspect]
     Active Substance: INFLIXIMAB-DYYB
     Dosage: 600 MG (EVERY 5 WEEKS)
     Route: 042
     Dates: start: 20220917
  21. FOLIC ACID [Concomitant]
     Active Substance: FOLIC ACID
     Dosage: 1 DF, 1X/DAY
     Route: 048
  22. FOLIC ACID [Concomitant]
     Active Substance: FOLIC ACID
     Dosage: 1 DF, 1X/DAY
     Route: 065
  23. FOLIC ACID [Concomitant]
     Active Substance: FOLIC ACID
     Dosage: 1 DF, 1X/DAY (1 TAB)
     Route: 048
  24. METHOTREXATE [Concomitant]
     Active Substance: METHOTREXATE
     Dosage: 2.5 MG TAB, WEEKLY
     Route: 048
  25. METHOTREXATE [Concomitant]
     Active Substance: METHOTREXATE
     Dosage: 2 MG, WEEKLY (TOTAL DOSE UNKNOWN)
     Route: 048
  26. METHOTREXATE [Concomitant]
     Active Substance: METHOTREXATE
     Dosage: 1 DF, WEEKLY 2 AND A HALF TABLET ONCE WEEKLY - TOTAL DOSE UNKNOWN
     Route: 048

REACTIONS (16)
  - Limb injury [Recovered/Resolved]
  - Nail disorder [Unknown]
  - Off label use [Unknown]
  - Off label use [Unknown]
  - Intentional product use issue [Unknown]
  - Inappropriate schedule of product administration [Unknown]
  - Blood pressure fluctuation [Unknown]
  - Weight increased [Unknown]
  - Constipation [Not Recovered/Not Resolved]
  - Faeces hard [Unknown]
  - Condition aggravated [Recovered/Resolved]
  - Infection [Recovered/Resolved]
  - Abdominal distension [Not Recovered/Not Resolved]
  - Weight decreased [Unknown]
  - Localised infection [Unknown]
  - Condition aggravated [Recovered/Resolved]

NARRATIVE: CASE EVENT DATE: 20200403
